FAERS Safety Report 5524497-9 (Version None)
Quarter: 2007Q4

REPORT INFORMATION
  Report Type: 
  Country: None (occurrence: None)
  Receive Date: 20071122
  Receipt Date: 20071114
  Transmission Date: 20080405
  Serious: Yes (Other)
  Sender: FDA-Public Use
  Company Number: PHBS2007US19164

PATIENT
  Age: 46 Year
  Sex: Male

DRUGS (1)
  1. BACLOFEN [Suspect]
     Indication: POLYSUBSTANCE DEPENDENCE
     Route: 048

REACTIONS (4)
  - ABDOMINAL DISTENSION [None]
  - ABDOMINAL PAIN UPPER [None]
  - GASTRIC DILATATION [None]
  - OESOPHAGEAL DISORDER [None]
